FAERS Safety Report 8913320 (Version 1)
Quarter: 2012Q4

REPORT INFORMATION
  Report Type: Report from Study
  Country: BR (occurrence: BR)
  Receive Date: 20121116
  Receipt Date: 20121116
  Transmission Date: 20130627
  Serious: Yes (Other)
  Sender: FDA-Public Use
  Company Number: BR-ABBOTT-12P-020-1008763-00

PATIENT
  Sex: Female
  Weight: 82 kg

DRUGS (3)
  1. HUMIRA [Suspect]
     Indication: RHEUMATOID ARTHRITIS
     Route: 058
     Dates: start: 20120618
  2. HUMIRA [Suspect]
     Route: 058
     Dates: start: 201108
  3. METHOTREXATE [Concomitant]
     Indication: ARTHRITIS
     Route: 058
     Dates: start: 2009

REACTIONS (3)
  - Abortion spontaneous [Unknown]
  - Premature separation of placenta [Unknown]
  - Maternal exposure before pregnancy [None]
